FAERS Safety Report 5391650-7 (Version None)
Quarter: 2007Q3

REPORT INFORMATION
  Report Type: 
  Country: None (occurrence: None)
  Receive Date: 20070719
  Receipt Date: 20070710
  Transmission Date: 20080115
  Serious: Yes (Other)
  Sender: FDA-Public Use
  Company Number: CH-JNJFOC-20070702550

PATIENT
  Sex: Female

DRUGS (4)
  1. REMICADE [Suspect]
     Route: 042
  2. REMICADE [Suspect]
     Indication: POLYARTHRITIS
     Route: 042
  3. METHOTREXATE [Concomitant]
     Indication: POLYARTHRITIS
     Route: 048
  4. PREDNISONE [Concomitant]

REACTIONS (5)
  - COUGH [None]
  - DYSPNOEA [None]
  - INFUSION RELATED REACTION [None]
  - SENSATION OF PRESSURE [None]
  - THROAT IRRITATION [None]
